FAERS Safety Report 20063605 (Version 1)
Quarter: 2021Q4

REPORT INFORMATION
  Report Type: Other
  Country: FR (occurrence: FR)
  Receive Date: 20211112
  Receipt Date: 20211112
  Transmission Date: 20220303
  Serious: Yes (Other)
  Sender: FDA-Public Use
  Company Number: None

PATIENT

DRUGS (9)
  1. VISIPAQUE [Interacting]
     Active Substance: IODIXANOL
     Indication: Therapeutic embolisation
     Dosage: 130 ML, SINGLE
     Route: 042
     Dates: start: 20200609, end: 20200609
  2. VISIPAQUE [Interacting]
     Active Substance: IODIXANOL
     Indication: Product used for unknown indication
  3. LIPIODOL [Interacting]
     Active Substance: ETHIODIZED OIL
     Indication: Therapeutic embolisation
     Dosage: 1.25 ML, SINGLE
     Route: 042
     Dates: start: 20200609, end: 20200609
  4. LIPIODOL [Interacting]
     Active Substance: ETHIODIZED OIL
     Indication: Product used for unknown indication
  5. VISIPAQUE [Concomitant]
     Active Substance: IODIXANOL
     Indication: Venogram
     Dosage: 105 ML, SINGLE
     Route: 042
     Dates: start: 20191022, end: 20191022
  6. VISIPAQUE [Concomitant]
     Active Substance: IODIXANOL
     Indication: Product used for unknown indication
  7. VISIPAQUE [Concomitant]
     Active Substance: IODIXANOL
     Indication: Therapeutic embolisation
     Dosage: 35 ML, SINGLE
     Route: 042
     Dates: start: 20191224, end: 20191224
  8. VISIPAQUE [Concomitant]
     Active Substance: IODIXANOL
     Indication: Product used for unknown indication
  9. DESOGESTREL [Concomitant]
     Active Substance: DESOGESTREL
     Dosage: 1 DF, QD
     Route: 048

REACTIONS (2)
  - Drug interaction [Not Recovered/Not Resolved]
  - Hyperthyroidism [Not Recovered/Not Resolved]

NARRATIVE: CASE EVENT DATE: 20200609
